FAERS Safety Report 8190684-7 (Version None)
Quarter: 2012Q1

REPORT INFORMATION
  Report Type: 
  Country: None (occurrence: None)
  Receive Date: 20120305
  Receipt Date: 20120229
  Transmission Date: 20120608
  Serious: Yes (Death)
  Sender: FDA-Public Use
  Company Number: ADR-2012-00473

PATIENT

DRUGS (1)
  1. LIORESAL [Suspect]

REACTIONS (2)
  - CARDIAC ARREST [None]
  - METABOLIC DISORDER [None]
